FAERS Safety Report 18111345 (Version 3)
Quarter: 2021Q2

REPORT INFORMATION
  Report Type: Spontaneous
  Country: US (occurrence: US)
  Receive Date: 20200805
  Receipt Date: 20210629
  Transmission Date: 20210717
  Serious: No
  Sender: FDA-Public Use
  Company Number: US-TEVA-2020-US-1809293

PATIENT
  Sex: Female

DRUGS (1)
  1. TRAZODONE HYDROCHLORIDE. [Suspect]
     Active Substance: TRAZODONE HYDROCHLORIDE
     Indication: INSOMNIA
     Route: 065
     Dates: start: 202007

REACTIONS (5)
  - Insomnia [Unknown]
  - Tremor [Unknown]
  - Nervousness [Unknown]
  - Agitation [Unknown]
  - Product shape issue [Unknown]

NARRATIVE: CASE EVENT DATE: 202007
